FAERS Safety Report 25131086 (Version 1)
Quarter: 2025Q1

REPORT INFORMATION
  Report Type: Spontaneous
  Country: US (occurrence: US)
  Receive Date: 20250327
  Receipt Date: 20250327
  Transmission Date: 20250409
  Serious: Yes (Hospitalization)
  Sender: ALKERMES
  Company Number: US-ALKERMES INC.-ALK-2025-000794

PATIENT
  Sex: Female

DRUGS (2)
  1. VIVITROL [Suspect]
     Active Substance: NALTREXONE
     Indication: Alcoholism
     Route: 030
     Dates: start: 202408
  2. VIVITROL [Suspect]
     Active Substance: NALTREXONE
     Indication: Alcohol use disorder

REACTIONS (1)
  - Hospitalisation [Unknown]

NARRATIVE: CASE EVENT DATE: 20250101
